FAERS Safety Report 13640260 (Version 3)
Quarter: 2017Q2

REPORT INFORMATION
  Report Type: Report from Study
  Country: None (occurrence: CA)
  Receive Date: 20170610
  Receipt Date: 20170619
  Transmission Date: 20170830
  Serious: Yes (Death, Life-Threatening, Hospitalization, Other)
  Sender: FDA-Public Use
  Company Number: CA-ABBVIE-17K-028-2003264-00

PATIENT
  Age: 54 Year
  Sex: Male

DRUGS (8)
  1. PENTASA [Concomitant]
     Active Substance: MESALAMINE
     Indication: PRODUCT USED FOR UNKNOWN INDICATION
  2. HUMIRA [Suspect]
     Active Substance: ADALIMUMAB
     Indication: CROHN^S DISEASE
     Route: 058
     Dates: start: 20120612
  3. IMURAN [Concomitant]
     Active Substance: AZATHIOPRINE
     Indication: PRODUCT USED FOR UNKNOWN INDICATION
  4. HUMIRA [Suspect]
     Active Substance: ADALIMUMAB
     Route: 058
  5. FOLIC ACID. [Concomitant]
     Active Substance: FOLIC ACID
     Indication: PRODUCT USED FOR UNKNOWN INDICATION
  6. PANTOLOC [Concomitant]
     Active Substance: PANTOPRAZOLE SODIUM
     Indication: PRODUCT USED FOR UNKNOWN INDICATION
  7. VITAMIN C [Concomitant]
     Active Substance: ASCORBIC ACID
     Indication: PRODUCT USED FOR UNKNOWN INDICATION
  8. PREDNISONE. [Concomitant]
     Active Substance: PREDNISONE
     Indication: PRODUCT USED FOR UNKNOWN INDICATION

REACTIONS (18)
  - Small intestinal obstruction [Fatal]
  - Adhesion [Fatal]
  - General physical health deterioration [Fatal]
  - Cardiac arrest [Fatal]
  - Hypotension [Unknown]
  - Respiratory failure [Fatal]
  - Sepsis [Fatal]
  - Intestinal ischaemia [Fatal]
  - Septic shock [Fatal]
  - Crohn^s disease [Unknown]
  - Hypotension [Fatal]
  - Small intestinal perforation [Fatal]
  - Acidosis [Fatal]
  - Abdominal distension [Fatal]
  - Renal failure [Fatal]
  - Hypoxia [Unknown]
  - Anal pruritus [Unknown]
  - Umbilical hernia [Unknown]

NARRATIVE: CASE EVENT DATE: 201702
